FAERS Safety Report 11542995 (Version 1)
Quarter: 2015Q3

REPORT INFORMATION
  Report Type: Spontaneous
  Country: AR (occurrence: AR)
  Receive Date: 20150923
  Receipt Date: 20150923
  Transmission Date: 20151125
  Serious: Yes (Death, Hospitalization)
  Sender: FDA-Public Use
  Company Number: AR-ASTRAZENECA-2015SE89758

PATIENT
  Age: 67 Year
  Sex: Female

DRUGS (1)
  1. ZACTIMA [Suspect]
     Active Substance: VANDETANIB
     Indication: THYROID CANCER
     Route: 048
     Dates: start: 201506

REACTIONS (3)
  - Pneumonia [Fatal]
  - Renal failure [Fatal]
  - Sepsis [Fatal]

NARRATIVE: CASE EVENT DATE: 20150829
